FAERS Safety Report 17438119 (Version 1)
Quarter: 2020Q1

REPORT INFORMATION
  Report Type: Spontaneous
  Country: US (occurrence: US)
  Receive Date: 20200220
  Receipt Date: 20200220
  Transmission Date: 20200409
  Serious: Yes (Other)
  Sender: FDA-Public Use
  Company Number: US-DRREDDYS-USA/USA/20/0119743

PATIENT
  Sex: Male

DRUGS (2)
  1. ZENATANE [Suspect]
     Active Substance: ISOTRETINOIN
     Indication: PRODUCT USED FOR UNKNOWN INDICATION
     Dosage: RME DATES: 04 OCTOBER 2019, 04 NOVEMBER 2019, 06 DECEMBER 2019 AND 13 JANUARY 2020
     Route: 048
  2. ZENATANE [Suspect]
     Active Substance: ISOTRETINOIN
     Dosage: RME DATES: 04 OCTOBER 2019, 04 NOVEMBER 2019, 06 DECEMBER 2019 AND 13 JANUARY 2020
     Route: 048

REACTIONS (2)
  - Mood altered [Unknown]
  - Depression [Unknown]
